FAERS Safety Report 11574293 (Version 1)
Quarter: 2015Q3

REPORT INFORMATION
  Report Type: Spontaneous
  Country: US (occurrence: None)
  Receive Date: 20150928
  Receipt Date: 20150928
  Transmission Date: 20151125
  Serious: No
  Sender: FDA-Public Use
  Company Number: None

PATIENT
  Age: 54 Year
  Sex: Female
  Weight: 56.7 kg

DRUGS (7)
  1. VITAMIN D [Concomitant]
     Active Substance: CHOLECALCIFEROL
  2. PROLIA [Concomitant]
     Active Substance: DENOSUMAB
  3. ESTRADIOL TRANSDERMAL SYSTEM [Suspect]
     Active Substance: ESTRADIOL
     Indication: OSTEOPOROSIS
     Dosage: 1 PATCH
     Route: 061
  4. VITAMIN C [Concomitant]
     Active Substance: ASCORBIC ACID
  5. SPIRONOLACTONE. [Concomitant]
     Active Substance: SPIRONOLACTONE
  6. CALCIUM [Concomitant]
     Active Substance: CALCIUM
  7. ESTRADIOL TRANSDERMAL SYSTEM [Suspect]
     Active Substance: ESTRADIOL
     Indication: MENOPAUSAL SYMPTOMS
     Dosage: 1 PATCH
     Route: 061

REACTIONS (7)
  - Product substitution issue [None]
  - Feeling hot [None]
  - Quality of life decreased [None]
  - Insomnia [None]
  - Mood swings [None]
  - Night sweats [None]
  - Irritability [None]
